FAERS Safety Report 10283662 (Version 2)
Quarter: 2014Q3

REPORT INFORMATION
  Report Type: Report from Study
  Country: US (occurrence: US)
  Receive Date: 20140708
  Receipt Date: 20140708
  Transmission Date: 20150326
  Serious: Yes (Disabling, Other)
  Sender: FDA-Public Use
  Company Number: US-BAYER-2014-066035

PATIENT
  Age: 68 Year
  Sex: Female

DRUGS (2)
  1. NEXAVAR [Suspect]
     Active Substance: SORAFENIB
     Indication: RENAL CELL CARCINOMA
  2. NEXAVAR [Suspect]
     Active Substance: SORAFENIB
     Indication: HEPATIC CANCER
     Dosage: TOTAL DAILY DOSE: 200MG, DOSE REGIMEN: BID
     Route: 048
     Dates: start: 20140418, end: 20140428

REACTIONS (7)
  - Rash generalised [None]
  - Rash [None]
  - Palmar-plantar erythrodysaesthesia syndrome [None]
  - Skin discolouration [None]
  - Exfoliative rash [None]
  - Dermatitis bullous [None]
  - Hypoaesthesia [None]
